FAERS Safety Report 10144058 (Version 1)
Quarter: 2014Q2

REPORT INFORMATION
  Report Type: Spontaneous
  Country: CA (occurrence: CA)
  Receive Date: 20140430
  Receipt Date: 20140430
  Transmission Date: 20141212
  Serious: Yes (Other)
  Sender: FDA-Public Use
  Company Number: CA-PFIZER INC-2014116312

PATIENT
  Age: 57 Year
  Sex: Female

DRUGS (4)
  1. CHAMPIX [Suspect]
     Dosage: UNK
  2. MIRTAZAPINE [Concomitant]
     Dosage: UNK
  3. OLMETEC [Concomitant]
     Dosage: UNK
  4. TYLENOL W/CODEINE NO. 3 [Concomitant]
     Dosage: UNK

REACTIONS (3)
  - Abnormal behaviour [Recovered/Resolved]
  - Morbid thoughts [Recovered/Resolved]
  - Paranoia [Recovered/Resolved]
